FAERS Safety Report 8282210-9 (Version None)
Quarter: 2012Q2

REPORT INFORMATION
  Report Type: 
  Country: None (occurrence: None)
  Receive Date: 20120413
  Receipt Date: 20120403
  Transmission Date: 20120825
  Serious: Yes (Other)
  Sender: FDA-Public Use
  Company Number: PHHY2012CA027698

PATIENT
  Sex: Male

DRUGS (10)
  1. RISPERDAL [Concomitant]
     Dosage: 20 MG, BID
  2. LORAZEPAM [Concomitant]
     Dosage: 1 MG, QHS
  3. RITALIN [Concomitant]
     Dosage: 20 MG IN MORNING AND IN NOON
  4. ALBUTEROL [Concomitant]
  5. CLOZARIL [Suspect]
     Indication: SCHIZOPHRENIA
     Dosage: 200 MG, DAILY
     Dates: start: 20110808
  6. CLOZARIL [Suspect]
     Dosage: UNK UKN, UNK
  7. COLACE [Concomitant]
  8. CLOZARIL [Suspect]
     Dosage: 175 MG
  9. CRESTOR [Concomitant]
  10. OXYCONTIN [Concomitant]
     Dosage: 2 MG, QHS

REACTIONS (9)
  - PALPITATIONS [None]
  - HALLUCINATION [None]
  - MENTAL DISORDER [None]
  - POLYSUBSTANCE DEPENDENCE [None]
  - TACHYCARDIA [None]
  - DRUG INEFFECTIVE [None]
  - BLOOD PRESSURE INCREASED [None]
  - ATTENTION DEFICIT/HYPERACTIVITY DISORDER [None]
  - SCHIZOPHRENIA, PARANOID TYPE [None]
